FAERS Safety Report 10668291 (Version 2)
Quarter: 2015Q1

REPORT INFORMATION
  Report Type: Spontaneous
  Country: IT (occurrence: IT)
  Receive Date: 20141222
  Receipt Date: 20150102
  Transmission Date: 20150720
  Serious: Yes (Death)
  Sender: FDA-Public Use
  Company Number: IT-CELGENE-ITA-2014123392

PATIENT

DRUGS (1)
  1. AZACITIDINE INJECTABLE [Suspect]
     Active Substance: AZACITIDINE
     Indication: MYELODYSPLASTIC SYNDROME
     Route: 058
     Dates: start: 200712

REACTIONS (10)
  - Death [Fatal]
  - Acute myeloid leukaemia [Fatal]
  - Completed suicide [Fatal]
  - Cardiac failure [Fatal]
  - Cerebrovascular accident [Fatal]
  - Adverse event [Unknown]
  - Haemorrhage [Fatal]
  - Disease progression [Unknown]
  - Treatment failure [Unknown]
  - Infection [Fatal]
